FAERS Safety Report 9263894 (Version 1)
Quarter: 2013Q2

REPORT INFORMATION
  Report Type: Spontaneous
  Country: US (occurrence: US)
  Receive Date: 20130430
  Receipt Date: 20130430
  Transmission Date: 20140414
  Serious: Yes (Death, Hospitalization)
  Sender: FDA-Public Use
  Company Number: US-GLAXOSMITHKLINE-A0781101A

PATIENT
  Age: 70 Year
  Sex: Female
  Weight: 92.5 kg

DRUGS (12)
  1. AVANDIA [Suspect]
     Indication: DIABETES MELLITUS
     Dosage: 8MG PER DAY
     Route: 048
     Dates: start: 20030104, end: 2007
  2. ISOSORBIDE MONONITRATE [Concomitant]
     Dosage: 30MG PER DAY
  3. FUROSEMIDE [Concomitant]
     Dosage: 20MG PER DAY
  4. GLIPIZIDE [Concomitant]
     Dosage: 10MG TWICE PER DAY
  5. PLAVIX [Concomitant]
     Dosage: 75MG PER DAY
     Route: 048
  6. METOPROLOL [Concomitant]
     Dosage: 25MG TWICE PER DAY
  7. ALTACE [Concomitant]
     Dosage: 2.5MG PER DAY
  8. ALBUTEROL [Concomitant]
  9. PREDNISONE [Concomitant]
     Dosage: 5MG PER DAY
  10. NEURONTIN [Concomitant]
     Dosage: 2400MG PER DAY
  11. QUININE [Concomitant]
     Dosage: 325MG PER DAY
  12. CELEBREX [Concomitant]

REACTIONS (7)
  - Myocardial ischaemia [Unknown]
  - Cerebrovascular accident [Unknown]
  - Cardiac failure congestive [Unknown]
  - Myocardial infarction [Unknown]
  - Respiratory failure [Fatal]
  - Pneumonia aspiration [Fatal]
  - Cardiac failure [Fatal]
